FAERS Safety Report 9961383 (Version 2)
Quarter: 2014Q1

REPORT INFORMATION
  Report Type: Report from Study
  Country: US (occurrence: US)
  Receive Date: 20140305
  Receipt Date: 20140318
  Transmission Date: 20141002
  Serious: Yes (Disabling)
  Sender: FDA-Public Use
  Company Number: PHEH2014US004331

PATIENT
  Age: 45 Year
  Sex: Male

DRUGS (11)
  1. GILENYA [Suspect]
     Indication: MULTIPLE SCLEROSIS
     Dosage: 0.5 MG, QD
     Route: 048
     Dates: start: 20130723
  2. LITHIUM CARBONATE [Concomitant]
  3. LEVOTHYROXINE [Concomitant]
  4. HORIZANT [Concomitant]
  5. AMITRIPTYLINE [Concomitant]
  6. MELATONIN [Concomitant]
  7. VIT D [Concomitant]
  8. VIT C [Concomitant]
  9. MULTIVITAMIN                       /00097801/ [Concomitant]
  10. VIT B12 [Concomitant]
  11. FLOMAX//MORNIFLUMATE [Concomitant]

REACTIONS (2)
  - Suicidal ideation [Recovering/Resolving]
  - Memory impairment [Not Recovered/Not Resolved]
